FAERS Safety Report 8503675-0 (Version None)
Quarter: 2012Q3

REPORT INFORMATION
  Report Type: 
  Country: None (occurrence: None)
  Receive Date: 20120711
  Receipt Date: 20120626
  Transmission Date: 20120928
  Serious: No
  Sender: FDA-Public Use
  Company Number: BR-JNJFOC-20120614568

PATIENT
  Age: 51 Year
  Sex: Female

DRUGS (2)
  1. AZATHIOPRINE [Concomitant]
     Indication: CROHN'S DISEASE
     Route: 065
     Dates: start: 20100101
  2. REMICADE [Suspect]
     Indication: CROHN'S DISEASE
     Route: 042
     Dates: start: 20120101

REACTIONS (4)
  - PHARYNGITIS BACTERIAL [None]
  - DIPLOPIA [None]
  - VITAMIN D DECREASED [None]
  - INFLUENZA [None]
